FAERS Safety Report 18461737 (Version 1)
Quarter: 2020Q4

REPORT INFORMATION
  Report Type: Report from Study
  Country: None (occurrence: ZA)
  Receive Date: 20201104
  Receipt Date: 20201104
  Transmission Date: 20210114
  Serious: Yes (Other)
  Sender: FDA-Public Use
  Company Number: ZA-ABBVIE-20K-143-3633059-00

PATIENT
  Sex: Female

DRUGS (1)
  1. HUMIRA [Suspect]
     Active Substance: ADALIMUMAB
     Indication: ANKYLOSING SPONDYLITIS
     Route: 058
     Dates: start: 2010, end: 2020

REACTIONS (2)
  - COVID-19 [Recovering/Resolving]
  - Total lung capacity decreased [Recovering/Resolving]

NARRATIVE: CASE EVENT DATE: 2020
